FAERS Safety Report 4280579-3 (Version None)
Quarter: 2004Q1

REPORT INFORMATION
  Report Type: 
  Country: None (occurrence: None)
  Receive Date: 20040127
  Receipt Date: 20040114
  Transmission Date: 20041129
  Serious: Yes (Death)
  Sender: FDA-Public Use
  Company Number: 2004194595FR

PATIENT
  Age: 65 Year
  Sex: Female

DRUGS (2)
  1. CELEBREX [Suspect]
     Indication: PSORIATIC ARTHROPATHY
     Dosage: 200 MG, QD, ORAL
     Route: 048
     Dates: start: 20020101
  2. PLAQUENIL [Suspect]

REACTIONS (1)
  - AORTIC ANEURYSM RUPTURE [None]
